FAERS Safety Report 16044169 (Version 1)
Quarter: 2019Q1

REPORT INFORMATION
  Report Type: Report from Study
  Country: US (occurrence: US)
  Receive Date: 20190306
  Receipt Date: 20190306
  Transmission Date: 20190418
  Serious: Yes (Hospitalization)
  Sender: FDA-Public Use
  Company Number: US-ACTELION-A-NJ2018-173509

PATIENT
  Age: 83 Year
  Sex: Female
  Weight: 56.69 kg

DRUGS (3)
  1. OPSUMIT [Suspect]
     Active Substance: MACITENTAN
     Indication: PULMONARY ARTERIAL HYPERTENSION
     Dosage: 10 MG, QD
     Route: 048
  2. WARFARIN [Concomitant]
     Active Substance: WARFARIN
  3. ELIQUIS [Concomitant]
     Active Substance: APIXABAN

REACTIONS (16)
  - Hospitalisation [Unknown]
  - Tension [Unknown]
  - Pleural effusion [Unknown]
  - Bronchitis [Unknown]
  - Back injury [Unknown]
  - Back pain [Unknown]
  - Hypertension [Unknown]
  - Hypotension [Unknown]
  - Thrombosis [Unknown]
  - Fall [Unknown]
  - Glaucoma [Unknown]
  - Therapy change [Unknown]
  - Pneumonia [Unknown]
  - Haemorrhage [Unknown]
  - Fatigue [Unknown]
  - Headache [Unknown]

NARRATIVE: CASE EVENT DATE: 201806
